FAERS Safety Report 6079225-8 (Version None)
Quarter: 2009Q1

REPORT INFORMATION
  Report Type: 
  Country: None (occurrence: None)
  Receive Date: 20090216
  Receipt Date: 20090210
  Transmission Date: 20090719
  Serious: Yes (Hospitalization, Other)
  Sender: FDA-Public Use
  Company Number: BR-ABBOTT-08P-020-0453415-00

PATIENT
  Sex: Female
  Weight: 60 kg

DRUGS (3)
  1. HUMIRA [Suspect]
     Indication: RHEUMATOID ARTHRITIS
     Route: 058
     Dates: start: 20070831, end: 20080324
  2. HUMIRA [Suspect]
     Dates: start: 20080701, end: 20080901
  3. LEFLUNOMIDE [Concomitant]
     Indication: DRUG USE FOR UNKNOWN INDICATION

REACTIONS (5)
  - ARTHRODESIS [None]
  - ARTHROPATHY [None]
  - DRY SKIN [None]
  - HYPERSENSITIVITY [None]
  - PROCEDURAL SITE REACTION [None]
